FAERS Safety Report 21724261 (Version 2)
Quarter: 2022Q4

REPORT INFORMATION
  Report Type: Spontaneous
  Country: PL (occurrence: PL)
  Receive Date: 20221213
  Receipt Date: 20221228
  Transmission Date: 20230113
  Serious: Yes (Other)
  Sender: FDA-Public Use
  Company Number: PL-GILEAD-2022-0608520

PATIENT
  Age: 37 Year
  Sex: Female

DRUGS (14)
  1. TRUVADA [Suspect]
     Active Substance: EMTRICITABINE\TENOFOVIR DISOPROXIL FUMARATE
     Indication: Product used for unknown indication
     Route: 065
  2. PREZISTA [Concomitant]
     Active Substance: DARUNAVIR ETHANOLATE
  3. NORVIR [Concomitant]
     Active Substance: RITONAVIR
  4. BISEPTOL [Concomitant]
     Active Substance: SULFAMETHOXAZOLE\TRIMETHOPRIM
  5. AZIGEN [Concomitant]
  6. FLUCONAZOLE [Concomitant]
     Active Substance: FLUCONAZOLE
  7. TIVICAY [Concomitant]
     Active Substance: DOLUTEGRAVIR SODIUM
  8. SYMTUZA [Concomitant]
     Active Substance: COBICISTAT\DARUNAVIR\EMTRICITABINE\TENOFOVIR ALAFENAMIDE
  9. MARAVIROC [Concomitant]
     Active Substance: MARAVIROC
  10. ROSUVASTATIN [Concomitant]
     Active Substance: ROSUVASTATIN
  11. RAMIPRIL [Concomitant]
     Active Substance: RAMIPRIL
  12. BISOPROLOL [Concomitant]
     Active Substance: BISOPROLOL
  13. PREDNISONE ACETATE [Concomitant]
     Active Substance: PREDNISONE ACETATE
  14. MARAVIROC [Concomitant]
     Active Substance: MARAVIROC

REACTIONS (3)
  - Thrombocytopenia [Unknown]
  - Viral load increased [Unknown]
  - Drug ineffective [Unknown]
